FAERS Safety Report 18272160 (Version 1)
Quarter: 2020Q3

REPORT INFORMATION
  Report Type: Spontaneous
  Country: GB (occurrence: GB)
  Receive Date: 20200916
  Receipt Date: 20200916
  Transmission Date: 20201103
  Serious: Yes (Other)
  Sender: FDA-Public Use
  Company Number: GB-TEVA-2020-GB-1826722

PATIENT
  Age: 54 Year
  Sex: Female
  Weight: 89 kg

DRUGS (10)
  1. PREDNISOLONE. [Suspect]
     Active Substance: PREDNISOLONE
     Dosage: 40 MG
     Route: 048
     Dates: start: 20200807, end: 20200811
  2. FEXOFENADINE HYDROCHLORIDE. [Concomitant]
     Active Substance: FEXOFENADINE HYDROCHLORIDE
     Indication: ILL-DEFINED DISORDER
  3. UNIPHYLLIN CONTINUS [Concomitant]
     Active Substance: THEOPHYLLINE ANHYDROUS
     Indication: ILL-DEFINED DISORDER
  4. MONTELUKAST [Concomitant]
     Active Substance: MONTELUKAST SODIUM
     Indication: ILL-DEFINED DISORDER
  5. RELVAR ELLIPTA [Concomitant]
     Active Substance: FLUTICASONE FUROATE\VILANTEROL TRIFENATATE
     Indication: ILL-DEFINED DISORDER
  6. OMEPRAZOLE. [Concomitant]
     Active Substance: OMEPRAZOLE
     Indication: ILL-DEFINED DISORDER
  7. SALBUTAMOL [Concomitant]
     Active Substance: ALBUTEROL
     Indication: ILL-DEFINED DISORDER
  8. TIOTROPIUM BROMIDE [Concomitant]
     Active Substance: TIOTROPIUM BROMIDE
     Indication: ILL-DEFINED DISORDER
  9. MOMETASONE FUROATE. [Concomitant]
     Active Substance: MOMETASONE FUROATE
     Indication: ILL-DEFINED DISORDER
  10. CITALOPRAM [Concomitant]
     Active Substance: CITALOPRAM HYDROBROMIDE
     Indication: ILL-DEFINED DISORDER

REACTIONS (2)
  - Pain of skin [Recovering/Resolving]
  - Migraine [Recovering/Resolving]

NARRATIVE: CASE EVENT DATE: 20200807
